FAERS Safety Report 5274004-3 (Version None)
Quarter: 2007Q1

REPORT INFORMATION
  Report Type: 
  Country: None (occurrence: None)
  Receive Date: 20070323
  Receipt Date: 20070312
  Transmission Date: 20070707
  Serious: Yes (Other)
  Sender: FDA-Public Use
  Company Number: FR-GLAXOSMITHKLINE-B0462252A

PATIENT
  Age: 79 Year
  Sex: Female

DRUGS (8)
  1. PAROXETINE HCL [Suspect]
     Indication: DEPRESSION
     Dosage: 20MG PER DAY
     Route: 048
     Dates: start: 20050401, end: 20061224
  2. LAROXYL [Concomitant]
     Indication: DEPRESSION
     Route: 065
     Dates: start: 20070101
  3. LEXOMIL [Concomitant]
     Dosage: 1TAB PER DAY
     Route: 048
  4. AUBEPINE [Concomitant]
     Route: 065
  5. ALDALIX [Concomitant]
     Route: 065
  6. MOTILIUM [Concomitant]
     Route: 065
  7. OMEPRAZOLE [Concomitant]
     Route: 065
  8. AZOPT [Concomitant]
     Indication: GLAUCOMA
     Route: 065

REACTIONS (9)
  - BALANCE DISORDER [None]
  - DIZZINESS [None]
  - DRY MOUTH [None]
  - DYSKINESIA [None]
  - FALL [None]
  - HALLUCINATION, VISUAL [None]
  - HYPERHIDROSIS [None]
  - MOUTH INJURY [None]
  - SOMNOLENCE [None]
